FAERS Safety Report 5924848-7 (Version None)
Quarter: 2008Q4

REPORT INFORMATION
  Report Type: 
  Country: None (occurrence: None)
  Receive Date: 20081020
  Receipt Date: 20081020
  Transmission Date: 20090506
  Serious: Yes (Hospitalization)
  Sender: FDA-Public Use
  Company Number: None

PATIENT
  Age: 58 Year
  Sex: Female
  Weight: 54.4316 kg

DRUGS (3)
  1. PENICILLIN [Suspect]
     Indication: TOOTH ABSCESS
     Dosage: TWICE DAILY
     Dates: start: 20080408, end: 20080624
  2. AMPICILLIN [Suspect]
     Indication: TOOTH ABSCESS
     Dosage: TWICE DAILY
     Dates: start: 20080430, end: 20080529
  3. AMPICILLIN [Suspect]
     Indication: TOOTH INFECTION
     Dosage: TWICE DAILY
     Dates: start: 20080430, end: 20080529

REACTIONS (4)
  - ADVERSE REACTION [None]
  - IMPAIRED WORK ABILITY [None]
  - NEUROPATHY PERIPHERAL [None]
  - TREMOR [None]
